FAERS Safety Report 16511853 (Version 1)
Quarter: 2019Q3

REPORT INFORMATION
  Report Type: Spontaneous
  Country: IN (occurrence: IN)
  Receive Date: 20190702
  Receipt Date: 20190702
  Transmission Date: 20191004
  Serious: Yes (Other)
  Sender: FDA-Public Use
  Company Number: IN-HERITAGE PHARMACEUTICALS-2019HTG00293

PATIENT
  Age: 63 Year
  Sex: Male

DRUGS (2)
  1. NIMODIPINE. [Suspect]
     Active Substance: NIMODIPINE
     Indication: CEREBRAL VASOCONSTRICTION
     Dosage: 6 MG/H
     Route: 013
  2. NIMODIPINE. [Suspect]
     Active Substance: NIMODIPINE
     Dosage: 3 MG IN EACH OF THE SPASTIC ARTERIAL SEGMENTS
     Route: 013

REACTIONS (2)
  - Diastolic hypotension [Recovered/Resolved]
  - Electrocardiogram ST segment depression [Recovered/Resolved]
